FAERS Safety Report 7767365-4 (Version None)
Quarter: 2011Q3

REPORT INFORMATION
  Report Type: 
  Country: None (occurrence: None)
  Receive Date: 20110922
  Receipt Date: 20100105
  Transmission Date: 20111222
  Serious: No
  Sender: FDA-Public Use
  Company Number: US-ASTRAZENECA-2009UW02711

PATIENT
  Age: 558 Month
  Sex: Male
  Weight: 127 kg

DRUGS (5)
  1. SERTRALINE HYDROCHLORIDE [Concomitant]
     Dosage: 100 MG
     Dates: start: 20070101
  2. SEROQUEL [Suspect]
     Indication: DEPRESSION
     Route: 048
     Dates: start: 20070202, end: 20070409
  3. RISPERDAL [Concomitant]
     Dosage: 3 MG
     Dates: start: 20070101
  4. ZOLOFT [Concomitant]
     Dosage: 50-100 MG
     Dates: start: 20061207
  5. RISPERDAL [Concomitant]
     Dosage: 3 MG
     Dates: start: 20061207

REACTIONS (4)
  - TYPE 2 DIABETES MELLITUS [None]
  - ABDOMINAL WALL MASS [None]
  - OBESITY [None]
  - MUSCLE STRAIN [None]
